FAERS Safety Report 12632742 (Version 2)
Quarter: 2016Q3

REPORT INFORMATION
  Report Type: Spontaneous
  Country: US (occurrence: US)
  Receive Date: 20160808
  Receipt Date: 20160808
  Transmission Date: 20161109
  Serious: No
  Sender: FDA-Public Use
  Company Number: US-BEH-2015056698

PATIENT
  Sex: Female
  Weight: 31 kg

DRUGS (29)
  1. VITAMIN E [Concomitant]
     Active Substance: .ALPHA.-TOCOPHEROL
  2. HIZENTRA [Suspect]
     Active Substance: HUMAN IMMUNOGLOBULIN G
     Indication: SELECTIVE IGG SUBCLASS DEFICIENCY
     Route: 058
  3. EPIPEN JR [Concomitant]
     Active Substance: EPINEPHRINE
  4. NASONEX [Concomitant]
     Active Substance: MOMETASONE FUROATE
  5. AMITRIPTYLINE [Concomitant]
     Active Substance: AMITRIPTYLINE
  6. IRON [Concomitant]
     Active Substance: IRON
  7. LIDOCAINE. [Concomitant]
     Active Substance: LIDOCAINE
  8. SINGULAIR [Concomitant]
     Active Substance: MONTELUKAST SODIUM
  9. DEPO-PROVERA [Concomitant]
     Active Substance: MEDROXYPROGESTERONE ACETATE
  10. PATANASE [Concomitant]
     Active Substance: OLOPATADINE HYDROCHLORIDE
  11. CLONAZEPAM. [Concomitant]
     Active Substance: CLONAZEPAM
  12. TOPIRAMATE. [Concomitant]
     Active Substance: TOPIRAMATE
  13. GLYCOLAX POWDER [Concomitant]
  14. INTUNIV [Concomitant]
     Active Substance: GUANFACINE HYDROCHLORIDE
  15. CHILDRENS TYLENOL [Concomitant]
     Active Substance: ACETAMINOPHEN
  16. PREVACID [Concomitant]
     Active Substance: LANSOPRAZOLE
  17. BANZEL [Concomitant]
     Active Substance: RUFINAMIDE
  18. PREDNISONE. [Concomitant]
     Active Substance: PREDNISONE
  19. SENOKOT-S [Concomitant]
     Active Substance: DOCUSATE SODIUM\SENNOSIDES
  20. ALBUTEROL SULF [Concomitant]
  21. FLONASE [Concomitant]
     Active Substance: FLUTICASONE PROPIONATE
  22. ADVAIR HFA [Concomitant]
     Active Substance: FLUTICASONE PROPIONATE\SALMETEROL XINAFOATE
  23. ZYRTEC [Concomitant]
     Active Substance: CETIRIZINE HYDROCHLORIDE
  24. HIZENTRA [Suspect]
     Active Substance: HUMAN IMMUNOGLOBULIN G
     Indication: HYPOGLOBULINAEMIA
     Route: 058
  25. DIPHENHYDRAMINE. [Concomitant]
     Active Substance: DIPHENHYDRAMINE
  26. DALLERGY [Concomitant]
     Active Substance: CHLORCYCLIZINE HYDROCHLORIDE\PHENYLEPHRINE\PHENYLEPHRINE HYDROCHLORIDE
  27. VITAMIN C [Concomitant]
     Active Substance: ASCORBIC ACID
  28. GABAPENTIN. [Concomitant]
     Active Substance: GABAPENTIN
  29. DIASTAT ACUDIAL [Concomitant]
     Active Substance: DIAZEPAM

REACTIONS (2)
  - Ear infection [Recovering/Resolving]
  - Sinusitis [Recovering/Resolving]
